FAERS Safety Report 6910109-6 (Version None)
Quarter: 2010Q3

REPORT INFORMATION
  Report Type: 
  Country: None (occurrence: None)
  Receive Date: 20100806
  Receipt Date: 20100730
  Transmission Date: 20110219
  Serious: No
  Sender: FDA-Public Use
  Company Number: US-TEVA-243276USA

PATIENT
  Sex: Female
  Weight: 68.1 kg

DRUGS (7)
  1. AZILECT [Suspect]
     Indication: PARKINSON'S DISEASE
     Route: 048
     Dates: start: 20100701
  2. LISINOPRIL [Concomitant]
  3. UBIDECARENONE [Concomitant]
  4. ERGOCALCIFEROL [Concomitant]
  5. TOCOPHEROL CONCENTRATE CAP [Concomitant]
  6. FISH OIL [Concomitant]
  7. CALCIUM [Concomitant]

REACTIONS (4)
  - DYSARTHRIA [None]
  - MOVEMENT DISORDER [None]
  - SPEECH DISORDER [None]
  - TREMOR [None]
